FAERS Safety Report 17331195 (Version 1)
Quarter: 2020Q1

REPORT INFORMATION
  Report Type: Spontaneous
  Country: US (occurrence: US)
  Receive Date: 20200110
  Receipt Date: 20200110
  Transmission Date: 20200409
  Serious: Yes (Hospitalization)
  Sender: FDA-Public Use
  Company Number: None

PATIENT
  Age: 43 Year
  Sex: Female
  Weight: 118.8 kg

DRUGS (3)
  1. ELLENCE [Suspect]
     Active Substance: EPIRUBICIN HYDROCHLORIDE
     Dates: end: 20050811
  2. CYCLOPHOSPHAMIDE. [Suspect]
     Active Substance: CYCLOPHOSPHAMIDE
     Dates: end: 20050811
  3. 5-FLUOROURACIL (5-FU) [Suspect]
     Active Substance: FLUOROURACIL
     Dates: end: 20050811

REACTIONS (9)
  - Dyspnoea [None]
  - Occult blood positive [None]
  - Duodenitis [None]
  - Embolism [None]
  - Pulmonary embolism [None]
  - Middle insomnia [None]
  - Angiopathy [None]
  - Gastritis [None]
  - Chest pain [None]

NARRATIVE: CASE EVENT DATE: 20050817
